FAERS Safety Report 22208252 (Version 6)
Quarter: 2023Q2

REPORT INFORMATION
  Report Type: Report from Study
  Country: US (occurrence: US)
  Receive Date: 20230413
  Receipt Date: 20230602
  Transmission Date: 20230721
  Serious: Yes (Life-Threatening, Hospitalization, Other)
  Sender: FDA-Public Use
  Company Number: US-TAKEDA-2023TUS028221

PATIENT
  Age: 57 Year
  Sex: Male

DRUGS (33)
  1. TEDUGLUTIDE [Suspect]
     Active Substance: TEDUGLUTIDE
     Indication: Short-bowel syndrome
     Dosage: 5 MILLIGRAM, QD
     Route: 042
     Dates: start: 20160614, end: 20161208
  2. TEDUGLUTIDE [Suspect]
     Active Substance: TEDUGLUTIDE
     Indication: Short-bowel syndrome
     Dosage: 5 MILLIGRAM, QD
     Route: 042
     Dates: start: 20160614, end: 20161208
  3. TEDUGLUTIDE [Suspect]
     Active Substance: TEDUGLUTIDE
     Indication: Short-bowel syndrome
     Dosage: 5 MILLIGRAM, QD
     Route: 042
     Dates: start: 20160614, end: 20161208
  4. TEDUGLUTIDE [Suspect]
     Active Substance: TEDUGLUTIDE
     Indication: Short-bowel syndrome
     Dosage: 5 MILLIGRAM, QD
     Route: 042
     Dates: start: 20160614, end: 20161208
  5. TEDUGLUTIDE [Suspect]
     Active Substance: TEDUGLUTIDE
     Dosage: 2.2 MILLIGRAM, QD
     Route: 042
     Dates: start: 20190306, end: 20211005
  6. TEDUGLUTIDE [Suspect]
     Active Substance: TEDUGLUTIDE
     Dosage: 2.2 MILLIGRAM, QD
     Route: 042
     Dates: start: 20190306, end: 20211005
  7. TEDUGLUTIDE [Suspect]
     Active Substance: TEDUGLUTIDE
     Dosage: 2.2 MILLIGRAM, QD
     Route: 042
     Dates: start: 20190306, end: 20211005
  8. TEDUGLUTIDE [Suspect]
     Active Substance: TEDUGLUTIDE
     Dosage: 2.2 MILLIGRAM, QD
     Route: 042
     Dates: start: 20190306, end: 20211005
  9. TEDUGLUTIDE [Suspect]
     Active Substance: TEDUGLUTIDE
     Dosage: 2.3 MILLIGRAM, QD
     Route: 042
     Dates: start: 20211006
  10. TEDUGLUTIDE [Suspect]
     Active Substance: TEDUGLUTIDE
     Dosage: 2.3 MILLIGRAM, QD
     Route: 042
     Dates: start: 20211006
  11. TEDUGLUTIDE [Suspect]
     Active Substance: TEDUGLUTIDE
     Dosage: 2.3 MILLIGRAM, QD
     Route: 042
     Dates: start: 20211006
  12. TEDUGLUTIDE [Suspect]
     Active Substance: TEDUGLUTIDE
     Dosage: 2.3 MILLIGRAM, QD
     Route: 042
     Dates: start: 20211006
  13. LOPERAMIDE [Concomitant]
     Active Substance: LOPERAMIDE
     Indication: Intestinal fistula
     Dosage: 4 MILLIGRAM
     Route: 048
     Dates: start: 20170607, end: 20191002
  14. LOPERAMIDE [Concomitant]
     Active Substance: LOPERAMIDE
     Indication: Diarrhoea
     Dosage: 2.5 MILLIGRAM, QID
     Route: 048
     Dates: start: 20181004, end: 20210811
  15. LOPERAMIDE [Concomitant]
     Active Substance: LOPERAMIDE
     Dosage: 4 MILLIGRAM, QID
     Route: 048
     Dates: start: 20191002
  16. PERCOCET [Concomitant]
     Active Substance: ACETAMINOPHEN\OXYCODONE HYDROCHLORIDE
     Indication: Pain
     Dosage: 5 MILLIGRAM
     Route: 048
     Dates: start: 20160607
  17. AMITRIPTYLINE [Concomitant]
     Active Substance: AMITRIPTYLINE
     Indication: Back pain
     Dosage: 50 MILLIGRAM, QD
     Route: 048
     Dates: start: 20160607
  18. CREON [Concomitant]
     Active Substance: PANCRELIPASE AMYLASE\PANCRELIPASE LIPASE\PANCRELIPASE PROTEASE
     Indication: Short-bowel syndrome
     Dosage: 24000 INTERNATIONAL UNIT, TID
     Route: 048
     Dates: start: 20170607, end: 20190814
  19. CREON [Concomitant]
     Active Substance: PANCRELIPASE AMYLASE\PANCRELIPASE LIPASE\PANCRELIPASE PROTEASE
     Dosage: 36000 INTERNATIONAL UNIT, BID
     Route: 048
     Dates: start: 20190814
  20. FAMOTIDINE [Concomitant]
     Active Substance: FAMOTIDINE
     Indication: Prophylaxis against gastrointestinal ulcer
     Dosage: 20 MILLIGRAM, QD
     Route: 042
     Dates: start: 20170607
  21. VITAMIN D [Concomitant]
     Active Substance: VITAMIN D NOS
     Indication: Supplementation therapy
     Dosage: 5000 INTERNATIONAL UNIT, BID
     Route: 048
     Dates: start: 20170607
  22. VITAMIN A [Concomitant]
     Active Substance: VITAMIN A
     Indication: Supplementation therapy
     Dosage: 10000 INTERNATIONAL UNIT, QD
     Route: 048
     Dates: start: 20170607, end: 202105
  23. IMODIUM [Concomitant]
     Active Substance: LOPERAMIDE HYDROCHLORIDE
     Indication: Colectomy
     Dosage: 4 MILLIGRAM, QID
     Route: 048
     Dates: start: 20191002, end: 20210811
  24. GLUTAMINE [Concomitant]
     Active Substance: GLUTAMINE
     Indication: Short-bowel syndrome
     Dosage: 15 MILLIGRAM, BID
     Route: 048
     Dates: start: 20171129
  25. CYANOCOBALAMIN [Concomitant]
     Active Substance: CYANOCOBALAMIN
     Indication: Mineral deficiency
     Dosage: UNK UNK, QD
     Route: 048
     Dates: start: 20191023
  26. ELAVIL [Concomitant]
     Active Substance: AMITRIPTYLINE HYDROCHLORIDE
     Indication: Pain
     Dosage: 25 MILLIGRAM
     Route: 048
     Dates: start: 20181022, end: 2018
  27. MORPHINE [Concomitant]
     Active Substance: MORPHINE
     Indication: Pain
     Dosage: 16 MILLIGRAM
     Route: 042
     Dates: start: 20181023, end: 2019
  28. ZOFRAN [Concomitant]
     Active Substance: ONDANSETRON HYDROCHLORIDE
     Indication: Nausea
     Dosage: 4 MILLIGRAM
     Route: 048
     Dates: start: 2015
  29. PANTOPRAZOLE [Concomitant]
     Active Substance: PANTOPRAZOLE
     Indication: Gastrooesophageal reflux disease
     Dosage: 40 MILLIGRAM, QD
     Route: 048
     Dates: start: 2015
  30. ZINCATE [Concomitant]
     Indication: Mineral deficiency
     Dosage: 220 MILLIGRAM, QD
     Route: 048
     Dates: start: 2015, end: 20200212
  31. CYMBALTA [Concomitant]
     Active Substance: DULOXETINE HYDROCHLORIDE
     Indication: Depression
     Dosage: 60 MILLIGRAM, QD
     Route: 048
     Dates: start: 20200910
  32. ALPRAZOLAM [Concomitant]
     Active Substance: ALPRAZOLAM
     Indication: Anxiety
     Dosage: 0.5 MILLIGRAM
     Route: 048
     Dates: start: 20200910
  33. CITRIC ACID, 1-STEARYL ESTER\SODIUM CITRATE [Concomitant]
     Active Substance: CITRIC ACID, 1-STEARYL ESTER\SODIUM CITRATE
     Indication: Renal tubular acidosis
     Dosage: 15 MILLILITER, QD
     Route: 048
     Dates: start: 20210813

REACTIONS (3)
  - Acute kidney injury [Recovered/Resolved with Sequelae]
  - Staphylococcal bacteraemia [Recovered/Resolved]
  - Dehydration [Not Recovered/Not Resolved]

NARRATIVE: CASE EVENT DATE: 20230410
